FAERS Safety Report 7963173-X (Version None)
Quarter: 2011Q4

REPORT INFORMATION
  Report Type: 
  Country: None (occurrence: None)
  Receive Date: 20111207
  Receipt Date: 20111128
  Transmission Date: 20120403
  Serious: Yes (Hospitalization)
  Sender: FDA-Public Use
  Company Number: AT-AMGEN-AUTSP2011064014

PATIENT
  Age: 24 Year
  Sex: Female

DRUGS (8)
  1. ETANERCEPT [Suspect]
     Indication: STILL'S DISEASE ADULT ONSET
     Dosage: 50 MG, WEEKLY
     Dates: start: 20090101
  2. PREDNISOLONE [Concomitant]
     Indication: STILL'S DISEASE ADULT ONSET
     Dosage: 50 MG, 1X/DAY
     Dates: start: 20090101
  3. METHOTREXATE SODIUM [Suspect]
     Indication: STILL'S DISEASE ADULT ONSET
     Dosage: 20 MG, WEEKLY
     Dates: start: 20090101
  4. ADALIMUMAB [Suspect]
     Indication: STILL'S DISEASE ADULT ONSET
     Dosage: 40 MG, UNK
     Dates: start: 20090101
  5. ADALIMUMAB [Suspect]
     Indication: ARTHRITIS
     Dosage: UNK UNK, UNK
  6. CHLOROQUINE DIPHOSPHATE [Concomitant]
     Indication: ARTHRITIS
     Dosage: 50 MG, 1X/DAY
     Dates: start: 20090101
  7. ETANERCEPT [Suspect]
     Indication: ARTHRITIS
     Dosage: UNK
  8. METHOTREXATE SODIUM [Suspect]
     Indication: ARTHRITIS
     Dosage: UNK

REACTIONS (1)
  - STILL'S DISEASE ADULT ONSET [None]
